FAERS Safety Report 23690204 (Version 2)
Quarter: 2024Q2

REPORT INFORMATION
  Report Type: Spontaneous
  Country: NO (occurrence: NO)
  Receive Date: 20240401
  Receipt Date: 20240408
  Transmission Date: 20240716
  Serious: Yes (Other)
  Sender: FDA-Public Use
  Company Number: NO-NOVOPROD-1135182

PATIENT
  Age: 62 Year
  Sex: Female
  Weight: 60 kg

DRUGS (5)
  1. WEGOVY [Suspect]
     Active Substance: SEMAGLUTIDE
     Indication: Overweight
     Dosage: 2.4 MG, QW
     Dates: start: 20221012
  2. SIMVASTATIN [Concomitant]
     Active Substance: SIMVASTATIN
     Indication: Blood cholesterol increased
     Dosage: 20 MG; DOSAGE: 1 TABLET EVENING
     Dates: start: 20130528
  3. QUETIAPINE [Concomitant]
     Active Substance: QUETIAPINE
     Indication: Depression
     Dosage: 100 MG; DOSAGE: 1 TABLET DAILY
     Dates: start: 20150203
  4. MIRTAZAPINE [Concomitant]
     Active Substance: MIRTAZAPINE
     Indication: Depression
     Dosage: 30 MG; DOSAGE: 1 TABLET AT BEDTIME
     Dates: start: 20210218
  5. INTRAROSA [Concomitant]
     Active Substance: PRASTERONE
     Indication: Mucosal disorder
     Dosage: 1 VAGITORY EVENING
     Dates: start: 20231017

REACTIONS (2)
  - Osteonecrosis [Unknown]
  - Osteoarthritis [Not Recovered/Not Resolved]

NARRATIVE: CASE EVENT DATE: 20230904
